FAERS Safety Report 4786045-0 (Version None)
Quarter: 2005Q3

REPORT INFORMATION
  Report Type: 
  Country: None (occurrence: None)
  Receive Date: 20050930
  Receipt Date: 20050930
  Transmission Date: 20060218
  Serious: Yes (Hospitalization)
  Sender: FDA-Public Use
  Company Number: None

PATIENT
  Sex: Female
  Weight: 69.7 kg

DRUGS (7)
  1. HYDROXYUREA [Suspect]
     Indication: GLIOBLASTOMA MULTIFORME
     Dosage: 500MG PO BID
     Route: 048
     Dates: start: 20050818
  2. GLEEVEC [Suspect]
     Indication: GLIOBLASTOMA MULTIFORME
     Dosage: 400MG PO QD
     Route: 048
     Dates: start: 20050818
  3. PREMARIN [Concomitant]
  4. NEXIUM [Concomitant]
  5. DECADRON [Concomitant]
  6. DETROL LA [Concomitant]
  7. PAXIL [Concomitant]

REACTIONS (4)
  - ASTHENIA [None]
  - CONVULSION [None]
  - DRUG TOXICITY [None]
  - ORAL CANDIDIASIS [None]
